FAERS Safety Report 12580283 (Version 1)
Quarter: 2016Q3

REPORT INFORMATION
  Report Type: Spontaneous
  Country: CA (occurrence: CA)
  Receive Date: 20160721
  Receipt Date: 20160721
  Transmission Date: 20161109
  Serious: Yes (Life-Threatening, Hospitalization)
  Sender: FDA-Public Use
  Company Number: CA-ASTRAZENECA-2016SE78065

PATIENT
  Age: 39 Year
  Sex: Male

DRUGS (6)
  1. QUETIAPINE. [Suspect]
     Active Substance: QUETIAPINE
     Route: 048
  2. BUPROPION. [Interacting]
     Active Substance: BUPROPION
  3. PRIMIDONE. [Interacting]
     Active Substance: PRIMIDONE
  4. OLANZAPINE. [Interacting]
     Active Substance: OLANZAPINE
  5. ESCITALOPRAM [Interacting]
     Active Substance: ESCITALOPRAM OXALATE
  6. PHENYTOIN. [Interacting]
     Active Substance: PHENYTOIN

REACTIONS (3)
  - Potentiating drug interaction [Unknown]
  - Serotonin syndrome [Recovered/Resolved]
  - Overdose [Unknown]
